FAERS Safety Report 10917673 (Version 1)
Quarter: 2015Q1

REPORT INFORMATION
  Report Type: Spontaneous
  Country: US (occurrence: None)
  Receive Date: 20150312
  Receipt Date: 20150312
  Transmission Date: 20150721
  Serious: No
  Sender: FDA-Public Use
  Company Number: None

PATIENT
  Age: 73 Year
  Sex: Female
  Weight: 65.77 kg

DRUGS (5)
  1. TUSSIN D [Concomitant]
  2. LEVAQUIN [Suspect]
     Active Substance: LEVOFLOXACIN
     Indication: UPPER RESPIRATORY TRACT INFECTION
     Dosage: BY MOUTH
     Dates: start: 20150102, end: 20150108
  3. ALBUTEROL SULFATE INHALER [Concomitant]
  4. SYNTHROID [Concomitant]
     Active Substance: LEVOTHYROXINE SODIUM
  5. ATENOLOL. [Concomitant]
     Active Substance: ATENOLOL

REACTIONS (7)
  - Arthralgia [None]
  - Tendon pain [None]
  - Back pain [None]
  - Burning sensation [None]
  - Gait disturbance [None]
  - Paraesthesia [None]
  - Muscular weakness [None]

NARRATIVE: CASE EVENT DATE: 20150112
